FAERS Safety Report 4413014-2 (Version None)
Quarter: 2004Q3

REPORT INFORMATION
  Report Type: 
  Country: None (occurrence: None)
  Receive Date: 20040730
  Receipt Date: 20040730
  Transmission Date: 20050211
  Serious: Yes (Other)
  Sender: FDA-Public Use
  Company Number: None

PATIENT
  Age: 48 Year
  Sex: Female

DRUGS (2)
  1. WELLBUTRIN SR [Suspect]
     Indication: PANIC DISORDER
     Dosage: 150 MG BID PO
     Route: 048
     Dates: start: 20040501
  2. KLONOPIN [Suspect]
     Indication: PROSTATIC SPECIFIC ANTIGEN ABNORMAL
     Dosage: 0.5 MG BID PO
     Route: 048
     Dates: start: 20040501

REACTIONS (3)
  - DRUG TOLERANCE DECREASED [None]
  - PHARMACEUTICAL PRODUCT COMPLAINT [None]
  - UNEVALUABLE EVENT [None]
